FAERS Safety Report 12274331 (Version 2)
Quarter: 2016Q2

REPORT INFORMATION
  Report Type: Spontaneous
  Country: None (occurrence: US)
  Receive Date: 20160415
  Receipt Date: 20160610
  Transmission Date: 20160815
  Serious: No
  Sender: FDA-Public Use
  Company Number: US-RARE DISEASE THERAPEUTICS, INC.-1050626

PATIENT
  Age: 32 Year
  Sex: Male
  Weight: 89.36 kg

DRUGS (6)
  1. LEUCOVORIN. [Concomitant]
     Active Substance: LEUCOVORIN
     Dates: start: 2008
  2. HYDROXOCOBALAMIN ACETATE. [Concomitant]
     Active Substance: HYDROXOCOBALAMIN ACETATE
     Dates: start: 2008
  3. VITAMIN D3DIETARY SUPPLEMEN DIETARY SUPPLEMENT [Concomitant]
     Active Substance: ALPHA-TOCOPHEROL\CHOLECALCIFEROL
     Dates: start: 2008
  4. XMTVI MAXAMAID [Concomitant]
  5. CYSTADANE [Suspect]
     Active Substance: BETAINE
     Indication: VITAMIN B12 DEFICIENCY
     Route: 048
     Dates: start: 20141119
  6. L-CARNITINE [Concomitant]
     Active Substance: LEVOCARNITINE
     Dates: start: 2008

REACTIONS (2)
  - Rash [Recovered/Resolved]
  - Overdose [None]
